FAERS Safety Report 5363950-8 (Version None)
Quarter: 2007Q2

REPORT INFORMATION
  Report Type: 
  Country: None (occurrence: None)
  Receive Date: 20070620
  Receipt Date: 20070608
  Transmission Date: 20071010
  Serious: Yes (Other)
  Sender: FDA-Public Use
  Company Number: FR-PFIZER INC-2007047256

PATIENT
  Sex: Female

DRUGS (2)
  1. LYRICA [Suspect]
     Indication: HERPES ZOSTER
     Dosage: DAILY DOSE:600MG
  2. LYRICA [Suspect]
     Indication: PAIN

REACTIONS (5)
  - ANOREXIA [None]
  - BALANCE DISORDER [None]
  - BLISTER [None]
  - DISTURBANCE IN ATTENTION [None]
  - PURPURA [None]
